FAERS Safety Report 10616576 (Version 4)
Quarter: 2015Q3

REPORT INFORMATION
  Report Type: Spontaneous
  Country: US (occurrence: US)
  Receive Date: 20141201
  Receipt Date: 20150806
  Transmission Date: 20151125
  Serious: Yes (Other)
  Sender: FDA-Public Use
  Company Number: US-BAYER-2014-174752

PATIENT
  Age: 25 Year
  Sex: Female
  Weight: 99.77 kg

DRUGS (2)
  1. YAZ [Suspect]
     Active Substance: DROSPIRENONE\ETHINYL ESTRADIOL
     Indication: ACNE
     Dosage: UNK
     Route: 048
     Dates: start: 2007, end: 2008
  2. YAZ [Suspect]
     Active Substance: DROSPIRENONE\ETHINYL ESTRADIOL
     Indication: PREMENSTRUAL DYSPHORIC DISORDER

REACTIONS (13)
  - Fractured coccyx [None]
  - Cerebrovascular accident [None]
  - Pain [None]
  - Depression [None]
  - Vena cava thrombosis [None]
  - Emotional distress [None]
  - Deep vein thrombosis [None]
  - Hypertension [None]
  - Injury [None]
  - Anxiety [None]
  - General physical health deterioration [None]
  - Hemiparesis [None]
  - Clumsiness [None]

NARRATIVE: CASE EVENT DATE: 2007
